FAERS Safety Report 8453154-4 (Version None)
Quarter: 2012Q2

REPORT INFORMATION
  Report Type: 
  Country: None (occurrence: None)
  Receive Date: 20120620
  Receipt Date: 20120510
  Transmission Date: 20120825
  Serious: No
  Sender: FDA-Public Use
  Company Number: US-VERTEX PHARMACEUTICALS INC.-AE-2012-006796

PATIENT
  Sex: Male
  Weight: 72.64 kg

DRUGS (4)
  1. RIBASPHERE [Concomitant]
     Indication: HEPATITIS C
     Route: 048
     Dates: start: 20120223, end: 20120321
  2. PEGASYS [Concomitant]
     Indication: HEPATITIS C
     Route: 058
     Dates: start: 20120223
  3. RIBASPHERE [Concomitant]
     Route: 048
     Dates: start: 20120322
  4. INCIVEK [Suspect]
     Indication: HEPATITIS C
     Route: 048
     Dates: start: 20120223

REACTIONS (6)
  - HYPERAESTHESIA [None]
  - RASH [None]
  - DYSPNOEA [None]
  - ANAEMIA [None]
  - PRURITUS [None]
  - WHITE BLOOD CELL COUNT DECREASED [None]
